FAERS Safety Report 7720531-6 (Version None)
Quarter: 2011Q3

REPORT INFORMATION
  Report Type: 
  Country: None (occurrence: None)
  Receive Date: 20110831
  Receipt Date: 20110831
  Transmission Date: 20111222
  Serious: Yes (Other)
  Sender: FDA-Public Use
  Company Number: None

PATIENT
  Age: 51 Year
  Sex: Male

DRUGS (6)
  1. GLATIRAMER ACETATE [Suspect]
     Indication: MULTIPLE SCLEROSIS
     Dosage: 20 MG
     Route: 058
  2. LAMOTRIGINE [Concomitant]
     Route: 048
  3. KETOPROFEN [Concomitant]
     Route: 048
  4. FLUOXETINE HYDROCHLORIDE [Concomitant]
     Route: 048
  5. ATIVAN [Concomitant]
     Route: 048
  6. BUPROPION HCL [Concomitant]
     Route: 048

REACTIONS (3)
  - MOLLUSCUM CONTAGIOSUM [None]
  - DISEASE RECURRENCE [None]
  - IMMUNE SYSTEM DISORDER [None]
